FAERS Safety Report 8508056-1 (Version None)
Quarter: 2012Q3

REPORT INFORMATION
  Report Type: 
  Country: None (occurrence: None)
  Receive Date: 20120713
  Receipt Date: 20120702
  Transmission Date: 20120928
  Serious: Yes (Hospitalization)
  Sender: FDA-Public Use
  Company Number: KR-BAYER-2012-065137

PATIENT
  Age: 57 Year
  Sex: Male

DRUGS (6)
  1. SORAFENIB (RAF KINASE INHIBITOR) [Suspect]
     Indication: HEPATIC NEOPLASM MALIGNANT
     Dosage: 800 MG, QD
     Route: 048
     Dates: start: 20100324, end: 20100512
  2. SORAFENIB (RAF KINASE INHIBITOR) [Suspect]
     Dosage: 600 MG, QD
     Route: 048
     Dates: start: 20100526, end: 20100609
  3. PLACEBO [Suspect]
     Indication: HEPATIC NEOPLASM MALIGNANT
     Dosage: UNK
     Route: 048
     Dates: start: 20100324, end: 20100512
  4. PLACEBO [Suspect]
     Dosage: UNK
     Dates: start: 20100618
  5. PLACEBO [Suspect]
     Dosage: UNK
     Route: 048
     Dates: start: 20100526, end: 20100609
  6. SORAFENIB (RAF KINASE INHIBITOR) [Suspect]
     Dosage: 400 MG, QD
     Route: 048
     Dates: start: 20100618

REACTIONS (2)
  - DIARRHOEA [None]
  - ANAL ABSCESS [None]
